FAERS Safety Report 16372803 (Version 1)
Quarter: 2019Q2

REPORT INFORMATION
  Report Type: Spontaneous
  Country: PT (occurrence: PT)
  Receive Date: 20190530
  Receipt Date: 20190530
  Transmission Date: 20190711
  Serious: Yes (Other)
  Sender: FDA-Public Use
  Company Number: PT-PFIZER INC-2019227092

PATIENT
  Age: 81 Year
  Sex: Female
  Weight: 65 kg

DRUGS (1)
  1. MEROPENEM. [Suspect]
     Active Substance: MEROPENEM
     Indication: INFECTION
     Dosage: 1000 MG, 3X/DAY
     Route: 042
     Dates: start: 20190506, end: 20190507

REACTIONS (1)
  - Macule [Not Recovered/Not Resolved]

NARRATIVE: CASE EVENT DATE: 20190506
